FAERS Safety Report 11362748 (Version 3)
Quarter: 2020Q4

REPORT INFORMATION
  Report Type: Report from Study
  Country: US (occurrence: US)
  Receive Date: 20150810
  Receipt Date: 20201106
  Transmission Date: 20210113
  Serious: No
  Sender: FDA-Public Use
  Company Number: US-SA-2014SA170562

PATIENT
  Age: 58 Year
  Sex: Female

DRUGS (2)
  1. TERIFLUNOMIDE. [Suspect]
     Active Substance: TERIFLUNOMIDE
     Dosage: 14 MG,QD
     Route: 048
     Dates: start: 20161031
  2. TERIFLUNOMIDE. [Suspect]
     Active Substance: TERIFLUNOMIDE
     Indication: MULTIPLE SCLEROSIS
     Dosage: 14 MG,QD
     Route: 048
     Dates: start: 20141104, end: 2014

REACTIONS (15)
  - Body temperature increased [Unknown]
  - Hypoaesthesia [Not Recovered/Not Resolved]
  - Head discomfort [Recovering/Resolving]
  - Alopecia [Unknown]
  - Hypoaesthesia [Unknown]
  - Oropharyngeal pain [Recovering/Resolving]
  - Blood pressure increased [Recovered/Resolved]
  - Memory impairment [Unknown]
  - Nail disorder [Unknown]
  - Impaired driving ability [Unknown]
  - Malaise [Recovering/Resolving]
  - Vaginal haemorrhage [Recovering/Resolving]
  - Blood pressure increased [Recovered/Resolved]
  - Abdominal discomfort [Not Recovered/Not Resolved]
  - Urinary tract infection [Unknown]

NARRATIVE: CASE EVENT DATE: 2014
